FAERS Safety Report 16337640 (Version 3)
Quarter: 2019Q2

REPORT INFORMATION
  Report Type: Spontaneous
  Country: CN (occurrence: CN)
  Receive Date: 20190521
  Receipt Date: 20190626
  Transmission Date: 20190711
  Serious: Yes (Other)
  Sender: FDA-Public Use
  Company Number: PHHY2019CN111890

PATIENT
  Age: 57 Year
  Sex: Male

DRUGS (1)
  1. PAZOPANIB [Suspect]
     Active Substance: PAZOPANIB
     Indication: RENAL CANCER
     Route: 048
     Dates: start: 20190424

REACTIONS (17)
  - Blood bilirubin increased [Unknown]
  - Abdominal discomfort [Not Recovered/Not Resolved]
  - Haematocrit decreased [Unknown]
  - Renal impairment [Unknown]
  - Liver function test increased [Unknown]
  - Platelet count decreased [Recovered/Resolved]
  - Blood bilirubin unconjugated increased [Unknown]
  - Blood creatinine increased [Unknown]
  - Hepatic function abnormal [Unknown]
  - Blood cholesterol increased [Unknown]
  - Chest discomfort [Not Recovered/Not Resolved]
  - Back pain [Unknown]
  - Alanine aminotransferase increased [Unknown]
  - Fatigue [Unknown]
  - Aspartate aminotransferase increased [Unknown]
  - Bilirubin conjugated increased [Unknown]
  - Blood uric acid increased [Unknown]

NARRATIVE: CASE EVENT DATE: 20190509
